FAERS Safety Report 20954260 (Version 2)
Quarter: 2022Q3

REPORT INFORMATION
  Report Type: Report from Study
  Country: US (occurrence: US)
  Receive Date: 20220614
  Receipt Date: 20220704
  Transmission Date: 20221026
  Serious: No
  Sender: FDA-Public Use
  Company Number: US-JNJFOC-20220555267

PATIENT
  Age: 5 Decade
  Sex: Female

DRUGS (2)
  1. STELARA [Suspect]
     Active Substance: USTEKINUMAB
     Indication: Crohn^s disease
     Route: 058
     Dates: start: 20211220
  2. STELARA [Suspect]
     Active Substance: USTEKINUMAB
     Dosage: STRENGTH:  90.00 MG/ML
     Route: 058
     Dates: start: 20220214

REACTIONS (2)
  - Syringe issue [Unknown]
  - Product dose omission issue [Unknown]
